FAERS Safety Report 7121730-7 (Version None)
Quarter: 2010Q4

REPORT INFORMATION
  Report Type: 
  Country: None (occurrence: None)
  Receive Date: 20101122
  Receipt Date: 20101122
  Transmission Date: 20110411
  Serious: No
  Sender: FDA-Public Use
  Company Number: None

PATIENT
  Age: 56 Year
  Sex: Female

DRUGS (8)
  1. LETAIRIS [Suspect]
     Indication: PULMONARY HYPERTENSION
     Dosage: 10MG DAILY ORALLY
     Route: 048
  2. FUROSEMIDE [Concomitant]
  3. LEVOTHROID [Concomitant]
  4. OMEPRAZOLE [Concomitant]
  5. VICODIN [Concomitant]
  6. VENLAFAXINE [Concomitant]
  7. FLONASE [Concomitant]
  8. PROAIR HFA [Concomitant]

REACTIONS (5)
  - FALL [None]
  - LIVER FUNCTION TEST ABNORMAL [None]
  - PRESYNCOPE [None]
  - PYREXIA [None]
  - VOMITING [None]
